FAERS Safety Report 15047779 (Version 1)
Quarter: 2018Q2

REPORT INFORMATION
  Report Type: Report from Study
  Country: None (occurrence: US)
  Receive Date: 20180621
  Receipt Date: 20180621
  Transmission Date: 20180711
  Serious: Yes (Other)
  Sender: FDA-Public Use
  Company Number: US-ABBVIE-18K-163-2321503-00

PATIENT
  Sex: Female

DRUGS (1)
  1. HUMIRA [Suspect]
     Active Substance: ADALIMUMAB
     Indication: RHEUMATOID ARTHRITIS
     Route: 058

REACTIONS (7)
  - Rheumatoid arthritis [Unknown]
  - Osteoarthritis [Unknown]
  - Pelvic fracture [Unknown]
  - Hip fracture [Unknown]
  - Weight increased [Unknown]
  - Drug ineffective [Unknown]
  - Bursitis [Unknown]
